FAERS Safety Report 8832126 (Version 2)
Quarter: 2013Q1

REPORT INFORMATION
  Report Type: Spontaneous
  Country: US (occurrence: US)
  Receive Date: 20121009
  Receipt Date: 20130226
  Transmission Date: 20140127
  Serious: Yes (Hospitalization)
  Sender: FDA-Public Use
  Company Number: US-ROCHE-1143142

PATIENT
  Age: 56 Year
  Sex: Female

DRUGS (5)
  1. XOLAIR [Suspect]
     Indication: URTICARIA
     Dosage: LAST INJECTION IN MID OF AUGUEST AND SEPTEMBER.
     Route: 065
     Dates: start: 20120504, end: 20120924
  2. LEVOTHYROXINE [Concomitant]
     Route: 048
  3. CETIRIZINE [Concomitant]
     Indication: URTICARIA
     Route: 048
  4. FUROSEMIDE [Concomitant]
     Indication: OEDEMA
     Route: 048
  5. DULERA [Concomitant]
     Indication: ASTHMA
     Dosage: 1 PUFF
     Route: 065

REACTIONS (1)
  - Pulmonary embolism [Recovered/Resolved]
